FAERS Safety Report 6822523-8 (Version None)
Quarter: 2010Q3

REPORT INFORMATION
  Report Type: 
  Country: None (occurrence: None)
  Receive Date: 20100707
  Receipt Date: 20100707
  Transmission Date: 20110219
  Serious: Yes (Life-Threatening)
  Sender: FDA-Public Use
  Company Number: None

PATIENT
  Age: 57 Year
  Sex: Male

DRUGS (2)
  1. MORPHINE [Suspect]
     Indication: PROCEDURAL PAIN
     Dosage: 2 MG Q 6 MIN PRN IV
     Route: 042
     Dates: start: 20090928, end: 20090929
  2. IV FLUID D5/NAC1 [Concomitant]

REACTIONS (2)
  - ACIDOSIS [None]
  - UNRESPONSIVE TO STIMULI [None]
